FAERS Safety Report 8600586-7 (Version None)
Quarter: 2012Q3

REPORT INFORMATION
  Report Type: 
  Country: None (occurrence: None)
  Receive Date: 20120803
  Receipt Date: 20120726
  Transmission Date: 20120928
  Serious: Yes (Disabling, Other)
  Sender: FDA-Public Use
  Company Number: AUR-APL-2012-03255

PATIENT
  Age: 62 Year
  Sex: Female
  Weight: 89.35 kg

DRUGS (8)
  1. FELODIPINE [Concomitant]
  2. ADCAL (CARBAZOCHROME) [Concomitant]
  3. CIPROFLOXACIN [Suspect]
     Indication: BRONCHITIS
     Dosage: 2 DOSAGE FORMS (1 DOSAGE FORMS, 1 IN 12 HR), ORAL
     Route: 048
     Dates: start: 20120521, end: 20120526
  4. DOXYCYCLINE [Concomitant]
  5. AMOXICILLIN [Concomitant]
  6. FLUTICASONE PROPIONATE/SALMETEROL [Concomitant]
  7. MU-CRON (MU-CRON) [Concomitant]
  8. OMEPRAZOLE [Concomitant]

REACTIONS (4)
  - ULCER [None]
  - OEDEMA PERIPHERAL [None]
  - BLISTER [None]
  - PARAESTHESIA [None]
